FAERS Safety Report 5203843-X (Version None)
Quarter: 2007Q1

REPORT INFORMATION
  Report Type: 
  Country: None (occurrence: None)
  Receive Date: 20070108
  Receipt Date: 20070108
  Transmission Date: 20070707
  Serious: Yes (Other)
  Sender: FDA-Public Use
  Company Number: None

PATIENT
  Sex: Female
  Weight: 11.3399 kg

DRUGS (2)
  1. TRIAMINIC SRT [Suspect]
     Indication: COUGH
     Dosage: 4 ML ONCE PO
     Route: 048
  2. TRIAMINIC SRT [Suspect]
     Indication: NASAL CONGESTION
     Dosage: 4 ML ONCE PO
     Route: 048

REACTIONS (6)
  - AGITATION [None]
  - HEART RATE INCREASED [None]
  - MYDRIASIS [None]
  - PARADOXICAL DRUG REACTION [None]
  - PUPILLARY REFLEX IMPAIRED [None]
  - RESTLESSNESS [None]
